FAERS Safety Report 10308292 (Version 2)
Quarter: 2014Q3

REPORT INFORMATION
  Report Type: Spontaneous
  Country: CA (occurrence: None)
  Receive Date: 20140714
  Receipt Date: 20140728
  Transmission Date: 20150326
  Serious: Yes (Hospitalization)
  Sender: FDA-Public Use
  Company Number: 2014SGN00800

PATIENT
  Age: 34 Year
  Weight: 49.2 kg

DRUGS (2)
  1. BENDAMUSTINE HYDROCHLORIDE [Suspect]
     Active Substance: BENDAMUSTINE HYDROCHLORIDE
     Indication: HODGKIN^S DISEASE
     Dosage: UNK, QCYCLE, INTRAVENOUS
     Route: 042
     Dates: start: 20140317, end: 20140619
  2. BRENTUXIMAB VEDOTIN [Suspect]
     Active Substance: BRENTUXIMAB VEDOTIN
     Indication: HODGKIN^S DISEASE
     Dosage: UNK, QCYCLE, INTRAVENOUS
     Route: 042
     Dates: start: 20140327, end: 20140619

REACTIONS (3)
  - Upper gastrointestinal haemorrhage [None]
  - Anaemia [None]
  - Hypotension [None]

NARRATIVE: CASE EVENT DATE: 20140623
